FAERS Safety Report 15329388 (Version 1)
Quarter: 2018Q3

REPORT INFORMATION
  Report Type: Spontaneous
  Country: US (occurrence: US)
  Receive Date: 20180829
  Receipt Date: 20180829
  Transmission Date: 20181010
  Serious: Yes (Hospitalization)
  Sender: FDA-Public Use
  Company Number: US-ROCHE-2175688

PATIENT
  Sex: Female

DRUGS (1)
  1. OCREVUS [Suspect]
     Active Substance: OCRELIZUMAB
     Indication: MULTIPLE SCLEROSIS
     Dosage: HAS RECEIVED 1?2 OCREVUS INFUSIONS
     Route: 065

REACTIONS (2)
  - Uhthoff^s phenomenon [Unknown]
  - Leukopenia [Recovered/Resolved]
